FAERS Safety Report 5771501-9 (Version None)
Quarter: 2008Q2

REPORT INFORMATION
  Report Type: 
  Country: None (occurrence: None)
  Receive Date: 20080611
  Receipt Date: 20080528
  Transmission Date: 20081010
  Serious: Yes (Hospitalization, Other)
  Sender: FDA-Public Use
  Company Number: 2008S1009049

PATIENT
  Age: 66 Year
  Sex: Female
  Weight: 65 kg

DRUGS (2)
  1. LASOFOXIFENE (NO PREF. NAME) [Suspect]
     Indication: OSTEOPOROSIS
     Dosage: 0.25 MG; ORAL
     Route: 048
     Dates: start: 20020522
  2. PENTOXIFYLLINE ER TABLETS [Suspect]
     Dosage: ORAL
     Route: 048
     Dates: start: 20020605, end: 20020615

REACTIONS (3)
  - CONDITION AGGRAVATED [None]
  - PANCREATITIS CHRONIC [None]
  - POST CONCUSSION SYNDROME [None]
